FAERS Safety Report 7526142-X (Version None)
Quarter: 2011Q2

REPORT INFORMATION
  Report Type: 
  Country: None (occurrence: None)
  Receive Date: 20110606
  Receipt Date: 20110527
  Transmission Date: 20111010
  Serious: Yes (Hospitalization, Other)
  Sender: FDA-Public Use
  Company Number: US-ASTRAZENECA-2011SE25601

PATIENT
  Age: 75 Year
  Sex: Female

DRUGS (2)
  1. TOPROL-XL [Suspect]
     Route: 048
  2. ARIMIDEX [Suspect]
     Route: 048

REACTIONS (5)
  - RADIOTHERAPY [None]
  - CHEMOTHERAPY [None]
  - BREAST CANCER [None]
  - MASTECTOMY [None]
  - SURGERY [None]
